FAERS Safety Report 17097069 (Version 3)
Quarter: 2020Q1

REPORT INFORMATION
  Report Type: Spontaneous
  Country: IL (occurrence: IL)
  Receive Date: 20191202
  Receipt Date: 20200101
  Transmission Date: 20200409
  Serious: Yes (Death, Hospitalization)
  Sender: FDA-Public Use
  Company Number: IL-ABBVIE-19K-082-3175151-00

PATIENT
  Age: 45 Year
  Sex: Male
  Weight: 68 kg

DRUGS (5)
  1. AMBISOME [Concomitant]
     Active Substance: AMPHOTERICIN B
     Indication: PULMONARY MYCOSIS
     Route: 042
     Dates: start: 20191128, end: 20191213
  2. VENCLEXTA [Suspect]
     Active Substance: VENETOCLAX
     Route: 048
     Dates: start: 20191204, end: 20191205
  3. VENCLEXTA [Suspect]
     Active Substance: VENETOCLAX
     Indication: ACUTE LYMPHOCYTIC LEUKAEMIA RECURRENT
     Route: 048
     Dates: start: 20191031, end: 2019
  4. VENCLEXTA [Suspect]
     Active Substance: VENETOCLAX
     Indication: ALLOGENIC STEM CELL TRANSPLANTATION
     Route: 048
     Dates: start: 201911, end: 201911
  5. FENTANYL. [Concomitant]
     Active Substance: FENTANYL
     Indication: PAIN
     Route: 062
     Dates: start: 20191209, end: 20191213

REACTIONS (5)
  - Loss of consciousness [Recovering/Resolving]
  - Escherichia bacteraemia [Fatal]
  - Off label use [Unknown]
  - Sepsis [Fatal]
  - Seizure [Recovered/Resolved]

NARRATIVE: CASE EVENT DATE: 2019
